FAERS Safety Report 7486328-X (Version None)
Quarter: 2011Q2

REPORT INFORMATION
  Report Type: 
  Country: None (occurrence: None)
  Receive Date: 20110517
  Receipt Date: 20110207
  Transmission Date: 20111010
  Serious: Yes (Other)
  Sender: FDA-Public Use
  Company Number: PHHY2011IT16594

PATIENT
  Sex: Female

DRUGS (6)
  1. CARBOPLATIN [Suspect]
     Indication: BREAST CANCER
     Dosage: 170 MG, CYCLIC
     Route: 042
     Dates: start: 20100323, end: 20100419
  2. TRIMETON [Concomitant]
     Indication: PROPHYLAXIS
     Dosage: 50 MG, UNK
     Route: 030
     Dates: start: 20100323, end: 20100419
  3. ZANTAC [Concomitant]
     Indication: PROPHYLAXIS
     Dosage: 50 MG, (50MG/5ML)
     Route: 042
     Dates: start: 20100323, end: 20100419
  4. TAXOL [Suspect]
     Indication: BREAST CANCER
     Dosage: 135 MG, CYCLIC (100MG/16.7ML)
     Route: 042
     Dates: start: 20100323, end: 20100323
  5. NAVOBAN [Concomitant]
     Indication: PROPHYLAXIS
     Dosage: 5 MG, (5 MG/5ML)
     Route: 042
     Dates: start: 20100323, end: 20100419
  6. SOLU-CORTEF [Concomitant]
     Indication: PROPHYLAXIS
     Dosage: 250 MG, (250MG/2ML)
     Route: 042
     Dates: start: 20100323, end: 20100419

REACTIONS (5)
  - CHEST PAIN [None]
  - PALPITATIONS [None]
  - BUNDLE BRANCH BLOCK LEFT [None]
  - ATRIAL FIBRILLATION [None]
  - VENOUS PRESSURE INCREASED [None]
